FAERS Safety Report 4501648-6 (Version None)
Quarter: 2004Q4

REPORT INFORMATION
  Report Type: 
  Country: None (occurrence: None)
  Receive Date: 20041109
  Receipt Date: 20041027
  Transmission Date: 20050328
  Serious: Yes (Hospitalization)
  Sender: FDA-Public Use
  Company Number: 04H-087-0271677-00

PATIENT
  Age: 60 Year
  Sex: Male

DRUGS (15)
  1. PRECEDEX INJECTION (DEXMEDETOMIDINE HYDROCHLORIDE INJECTION) [Suspect]
     Indication: SEDATIVE THERAPY
     Route: 042
     Dates: start: 20040804, end: 20040805
  2. PRECEDEX INJECTION (DEXMEDETOMIDINE HYDROCHLORIDE INJECTION) [Suspect]
     Indication: SEDATIVE THERAPY
     Route: 042
     Dates: start: 20040807, end: 20040808
  3. NITROGLYCERIN TAPE [Suspect]
     Dates: start: 20040805, end: 20040813
  4. DINOPROST [Suspect]
     Dosage: 1 MG, BID, INTRAVENOUS
     Route: 042
     Dates: start: 20040805, end: 20040808
  5. CEFAZOLIN SODIUM [Concomitant]
  6. OMEPRAZOLE [Concomitant]
  7. PANTHENOL [Concomitant]
  8. METOCLOPRAMIDE [Concomitant]
  9. INSULIN [Concomitant]
  10. DOPAMINE HYDROCHLORIDE [Concomitant]
  11. NOREPINEPHRINE` [Concomitant]
  12. NICORANDIL [Concomitant]
  13. BIFIDOBACTERIUM [Concomitant]
  14. MAGNESIUM OXIDE [Concomitant]
  15. RABEPRAZOLE SODIUM [Concomitant]

REACTIONS (5)
  - BLOOD PRESSURE DECREASED [None]
  - DEPRESSED LEVEL OF CONSCIOUSNESS [None]
  - GAZE PALSY [None]
  - REFLEXES ABNORMAL [None]
  - TRANSIENT ISCHAEMIC ATTACK [None]
